FAERS Safety Report 7246210-X (Version None)
Quarter: 2011Q1

REPORT INFORMATION
  Report Type: 
  Country: None (occurrence: None)
  Receive Date: 20110126
  Receipt Date: 20110113
  Transmission Date: 20110831
  Serious: Yes (Hospitalization)
  Sender: FDA-Public Use
  Company Number: B0695586A

PATIENT
  Age: 73 Year
  Sex: Female

DRUGS (9)
  1. MORPHINE [Suspect]
     Indication: COUGH
     Route: 065
     Dates: start: 20100328, end: 20100331
  2. FOSINOPRIL SODIUM AND HYDROCHLOROTHIAZIDE [Concomitant]
     Dates: start: 19990101
  3. SANTYL [Suspect]
     Indication: DUPUYTREN'S CONTRACTURE
     Dosage: .58MG PER DAY
     Route: 026
     Dates: start: 20080121, end: 20080331
  4. ONDANSETRON [Concomitant]
     Dates: start: 20100328
  5. CLARITHROMYCIN [Concomitant]
     Dates: start: 20100401
  6. AZITHROMYCIN [Suspect]
     Route: 065
     Dates: start: 20100328, end: 20100331
  7. ALBUTEROL SULFATE AUTOHALER [Suspect]
     Indication: PERTUSSIS
     Route: 065
     Dates: start: 20100329, end: 20100331
  8. CONJUGATED ESTROGENS [Concomitant]
     Dates: start: 19940101
  9. MELOXICAM [Concomitant]
     Dates: start: 20090101

REACTIONS (1)
  - VOMITING [None]
